FAERS Safety Report 5608051-6 (Version None)
Quarter: 2008Q1

REPORT INFORMATION
  Report Type: 
  Country: None (occurrence: None)
  Receive Date: 20080130
  Receipt Date: 20080122
  Transmission Date: 20080703
  Serious: Yes (Other)
  Sender: FDA-Public Use
  Company Number: PHBS2008CO00872

PATIENT
  Age: 58 Year
  Sex: Male

DRUGS (4)
  1. GLEEVEC [Suspect]
     Indication: GASTROINTESTINAL STROMAL TUMOUR
     Dosage: 400 MG/D
     Route: 048
     Dates: start: 20050101
  2. METOCLOPRAMIDE [Concomitant]
     Dosage: 10 MG, Q12H
     Route: 065
  3. RANITIDINE [Concomitant]
     Dosage: 150 MG/D
     Route: 065
  4. TRAMADOL HCL [Concomitant]
     Route: 065

REACTIONS (3)
  - DISEASE PROGRESSION [None]
  - GASTROINTESTINAL STROMAL TUMOUR [None]
  - SURGERY [None]
